FAERS Safety Report 12658447 (Version 1)
Quarter: 2016Q3

REPORT INFORMATION
  Report Type: Report from Study
  Country: US (occurrence: US)
  Receive Date: 20160817
  Receipt Date: 20160817
  Transmission Date: 20161109
  Serious: No
  Sender: FDA-Public Use
  Company Number: PHEH2016US020560

PATIENT
  Age: 61 Year

DRUGS (1)
  1. COSENTYX [Suspect]
     Active Substance: SECUKINUMAB
     Indication: PSORIASIS
     Dosage: 300 MG, QW
     Route: 058
     Dates: start: 20160718

REACTIONS (3)
  - Rhinorrhoea [Recovering/Resolving]
  - Nasopharyngitis [Recovering/Resolving]
  - Sneezing [Recovering/Resolving]

NARRATIVE: CASE EVENT DATE: 20160808
